FAERS Safety Report 5355012-0 (Version None)
Quarter: 2007Q2

REPORT INFORMATION
  Report Type: 
  Country: None (occurrence: None)
  Receive Date: 20070521
  Receipt Date: 20070402
  Transmission Date: 20071010
  Serious: No
  Sender: FDA-Public Use
  Company Number: WAES 0704USA00396

PATIENT
  Sex: Male
  Weight: 106.1417 kg

DRUGS (11)
  1. JANUVIA [Suspect]
     Indication: DIABETES MELLITUS NON-INSULIN-DEPENDENT
     Dosage: 100 MG/DAILY/PO
     Route: 048
     Dates: start: 20061212
  2. ACTOS [Concomitant]
  3. COZAAR [Concomitant]
  4. OMACOR [Concomitant]
  5. ZETIA [Concomitant]
  6. ASPIRIN [Concomitant]
  7. LISINOPRIL AND HYDROCHLOROTHIAZIDE [Concomitant]
  8. METOCLOPRAMIDE [Concomitant]
  9. METOPROLOL SUCCINATE [Concomitant]
  10. PROBENECID [Concomitant]
  11. RANITIDINE [Concomitant]

REACTIONS (3)
  - DRUG INEFFECTIVE [None]
  - GLYCOSYLATED HAEMOGLOBIN INCREASED [None]
  - HYPERLIPIDAEMIA [None]
